FAERS Safety Report 6502444-0 (Version None)
Quarter: 2009Q4

REPORT INFORMATION
  Report Type: 
  Country: None (occurrence: None)
  Receive Date: 20091203
  Receipt Date: 20091117
  Transmission Date: 20100525
  Serious: Yes (Other)
  Sender: FDA-Public Use
  Company Number: B0608656A

PATIENT

DRUGS (4)
  1. MELPHALAN HYDROCHLORIDE [Suspect]
     Indication: LYMPHOMA
     Dosage: 140 MG/M2,
  2. ETOPOSIDE [Suspect]
     Indication: LYMPHOMA
     Dosage: 200 MG, M2;
  3. FOTEMUSTINE (FORMULATION UNKNOWN) (FOTEMUSTINE) [Suspect]
     Indication: LYMPHOMA
     Dosage: 150 MG, M2;
  4. CYTARABINE [Suspect]
     Indication: LYMPHOMA
     Dosage: 400 MG, M2;

REACTIONS (1)
  - DRUG TOXICITY [None]
